FAERS Safety Report 15590773 (Version 1)
Quarter: 2018Q4

REPORT INFORMATION
  Report Type: Report from Study
  Country: CA (occurrence: CA)
  Receive Date: 20181106
  Receipt Date: 20181106
  Transmission Date: 20190205
  Serious: Yes (Other)
  Sender: FDA-Public Use
  Company Number: PHHY2017CA164035

PATIENT
  Age: 47 Year
  Sex: Female

DRUGS (1)
  1. GILENYA [Suspect]
     Active Substance: FINGOLIMOD HYDROCHLORIDE
     Indication: PRODUCT USED FOR UNKNOWN INDICATION
     Route: 048
     Dates: start: 20171026

REACTIONS (6)
  - Dizziness [Recovered/Resolved]
  - Peripheral coldness [Unknown]
  - Chest X-ray abnormal [Unknown]
  - Deep vein thrombosis [Unknown]
  - Pallor [Unknown]
  - Arthralgia [Unknown]

NARRATIVE: CASE EVENT DATE: 201805
